FAERS Safety Report 22623927 (Version 1)
Quarter: 2023Q2

REPORT INFORMATION
  Report Type: Spontaneous
  Country: US (occurrence: None)
  Receive Date: 20230619
  Receipt Date: 20230619
  Transmission Date: 20230722
  Serious: Yes (Other)
  Sender: FDA-Public Use
  Company Number: None

PATIENT
  Age: 36 Year
  Sex: Female
  Weight: 123.75 kg

DRUGS (9)
  1. CEPHALEXIN [Suspect]
     Active Substance: CEPHALEXIN
     Indication: Urinary tract infection
     Dosage: 20 CAPSULES EVERY 6 HOURS ORAL
     Route: 048
     Dates: start: 20230608, end: 20230613
  2. GABAPENTIN [Concomitant]
     Active Substance: GABAPENTIN
  3. QUETIAPINE [Concomitant]
     Active Substance: QUETIAPINE
  4. SERTRALINE [Concomitant]
     Active Substance: SERTRALINE HYDROCHLORIDE
  5. BACLOFEN [Concomitant]
     Active Substance: BACLOFEN
  6. SPIRONOLACTONE [Concomitant]
     Active Substance: SPIRONOLACTONE
  7. LIOTHYRONINE [Concomitant]
     Active Substance: LIOTHYRONINE
  8. VAGIFEM [Concomitant]
     Active Substance: ESTRADIOL
  9. NUTRAFOL [Concomitant]

REACTIONS (2)
  - Depression [None]
  - Suicidal ideation [None]

NARRATIVE: CASE EVENT DATE: 20230609
